FAERS Safety Report 23787168 (Version 1)
Quarter: 2024Q2

REPORT INFORMATION
  Report Type: Spontaneous
  Country: FR (occurrence: FR)
  Receive Date: 20240426
  Receipt Date: 20240426
  Transmission Date: 20240716
  Serious: Yes (Hospitalization, Other)
  Sender: FDA-Public Use
  Company Number: FR-SUN PHARMACEUTICAL INDUSTRIES LTD-2024RR-443590

PATIENT
  Age: 85 Year
  Sex: Male
  Weight: 60 kg

DRUGS (3)
  1. LEVOFLOXACIN [Suspect]
     Active Substance: LEVOFLOXACIN
     Indication: Device related infection
     Dosage: 500 MILLIGRAM, DAILY
     Route: 048
     Dates: start: 20231115, end: 20231227
  2. MEROPENEM [Suspect]
     Active Substance: MEROPENEM
     Indication: Device related infection
     Dosage: 9 GRAM, DAILY
     Route: 040
     Dates: start: 20231106, end: 20231227
  3. RIFAMPIN [Suspect]
     Active Substance: RIFAMPIN
     Indication: Device related infection
     Dosage: 900 MILLIGRAM, DAILY
     Route: 048
     Dates: start: 20231107, end: 20231220

REACTIONS (2)
  - Rash maculo-papular [Recovered/Resolved]
  - Eosinophilia [Recovered/Resolved]

NARRATIVE: CASE EVENT DATE: 20231215
